FAERS Safety Report 5142073-7 (Version None)
Quarter: 2006Q4

REPORT INFORMATION
  Report Type: 
  Country: None (occurrence: None)
  Receive Date: 20061030
  Receipt Date: 20061030
  Transmission Date: 20070319
  Serious: No
  Sender: FDA-Public Use
  Company Number: None

PATIENT
  Age: 67 Year
  Sex: Female
  Weight: 80 kg

DRUGS (1)
  1. MULTIVITAMIN [Suspect]
     Dosage: 1 TABLETS 1 PO
     Route: 048

REACTIONS (2)
  - BLOOD COPPER INCREASED [None]
  - PHARMACEUTICAL PRODUCT COMPLAINT [None]
